FAERS Safety Report 4274225-2 (Version None)
Quarter: 2004Q1

REPORT INFORMATION
  Report Type: 
  Country: None (occurrence: None)
  Receive Date: 20040115
  Receipt Date: 20040107
  Transmission Date: 20041129
  Serious: Yes (Hospitalization)
  Sender: FDA-Public Use
  Company Number: 2004001061

PATIENT
  Age: 73 Year
  Sex: Female
  Weight: 43.0917 kg

DRUGS (4)
  1. ZITHROMAX [Suspect]
     Indication: ILL-DEFINED DISORDER
  2. VALSARTAN (VALSARTAN) [Concomitant]
  3. HYDROCHLOROTHIAZIDE [Concomitant]
  4. LOPRESSOR [Concomitant]

REACTIONS (4)
  - BLOOD PRESSURE DECREASED [None]
  - BLOOD PRESSURE INCREASED [None]
  - DIARRHOEA [None]
  - WEIGHT DECREASED [None]
